FAERS Safety Report 4806242-5 (Version None)
Quarter: 2005Q4

REPORT INFORMATION
  Report Type: 
  Country: None (occurrence: None)
  Receive Date: 20051021
  Receipt Date: 20051013
  Transmission Date: 20060501
  Serious: Yes (Hospitalization)
  Sender: FDA-Public Use
  Company Number: 2005CG01734

PATIENT
  Age: 53 Year
  Sex: Female

DRUGS (6)
  1. XYLOCAINE [Suspect]
     Indication: BACK PAIN
     Dosage: 4 INJECTIONS
     Route: 030
     Dates: start: 20030301, end: 20030301
  2. XYLOCAINE [Suspect]
     Dosage: 1 INJECTION
     Route: 030
     Dates: start: 20040301, end: 20040301
  3. VISCERALGINE [Concomitant]
     Indication: BACK PAIN
     Dosage: 4 INJECTIONS
     Route: 030
     Dates: start: 20030301, end: 20030301
  4. VISCERALGINE [Concomitant]
     Dosage: 1 INJECTION
     Route: 030
     Dates: start: 20040301, end: 20040301
  5. CELESTENE [Concomitant]
     Indication: BACK PAIN
     Dosage: 4 INJECTIONS
     Route: 030
     Dates: start: 20030301, end: 20030301
  6. CELESTENE [Concomitant]
     Dosage: 1 INJECTION
     Route: 030
     Dates: start: 20040301, end: 20040301

REACTIONS (3)
  - INJECTION SITE HAEMORRHAGE [None]
  - INJECTION SITE INDURATION [None]
  - INJECTION SITE INFECTION [None]
